FAERS Safety Report 5918245-8 (Version None)
Quarter: 2008Q4

REPORT INFORMATION
  Report Type: 
  Country: None (occurrence: None)
  Receive Date: 20081014
  Receipt Date: 20080929
  Transmission Date: 20090506
  Serious: Yes (Hospitalization)
  Sender: FDA-Public Use
  Company Number: NL-GENENTECH-269318

PATIENT
  Sex: Female

DRUGS (3)
  1. BEVACIZUMAB [Suspect]
     Indication: BREAST CANCER METASTATIC
     Dosage: 1225 MG, QD
     Route: 042
     Dates: start: 20080318, end: 20080812
  2. CAPECITABINE [Suspect]
     Indication: BREAST CANCER METASTATIC
     Dosage: 3300 MG, QD
     Route: 048
     Dates: start: 20080318, end: 20080825
  3. TAXOL [Suspect]
     Indication: BREAST CANCER METASTATIC
     Dosage: 120 MG, QD
     Route: 042
     Dates: start: 20080318, end: 20080819

REACTIONS (1)
  - SKIN NECROSIS [None]
